FAERS Safety Report 5206918-4 (Version None)
Quarter: 2007Q1

REPORT INFORMATION
  Report Type: 
  Country: None (occurrence: None)
  Receive Date: 20070105
  Receipt Date: 20070105
  Transmission Date: 20070707
  Serious: Yes (Hospitalization)
  Sender: FDA-Public Use
  Company Number: None

PATIENT
  Age: 36 Year
  Sex: Male
  Weight: 90 kg

DRUGS (6)
  1. NYQUIL [Suspect]
     Dosage: 180 ML Q 3 PM + 6 PM
     Dates: start: 20061024
  2. CLONAZEPAM [Concomitant]
  3. LEVOTHYROXINE SODIUM [Concomitant]
  4. HYDROCHLOROTHIAZIDE [Concomitant]
  5. RAMIPRIL [Concomitant]
  6. FINASTERIDE [Concomitant]

REACTIONS (11)
  - ALANINE AMINOTRANSFERASE INCREASED [None]
  - ASPARTATE AMINOTRANSFERASE INCREASED [None]
  - ASTHENIA [None]
  - BLOOD LACTIC ACID INCREASED [None]
  - BLOOD PRESSURE DIASTOLIC DECREASED [None]
  - COLD SWEAT [None]
  - MYDRIASIS [None]
  - OVERDOSE [None]
  - PALPITATIONS [None]
  - TACHYCARDIA [None]
  - TREMOR [None]
